FAERS Safety Report 10083308 (Version 1)
Quarter: 2014Q2

REPORT INFORMATION
  Report Type: Spontaneous
  Country: US (occurrence: None)
  Receive Date: 20140415
  Receipt Date: 20140415
  Transmission Date: 20141212
  Serious: Yes (Other)
  Sender: FDA-Public Use
  Company Number: 2014P1002846

PATIENT
  Age: 42 Year
  Sex: Male
  Weight: 56.7 kg

DRUGS (2)
  1. METHYLPREDNISOLONE [Suspect]
     Indication: DYSPNOEA
     Route: 048
     Dates: start: 20140325, end: 20140329
  2. IBUPROFEN [Concomitant]

REACTIONS (3)
  - Dysgeusia [None]
  - Parosmia [None]
  - Weight decreased [None]
